FAERS Safety Report 5950100-X (Version None)
Quarter: 2008Q4

REPORT INFORMATION
  Report Type: 
  Country: None (occurrence: None)
  Receive Date: 20081112
  Receipt Date: 20081104
  Transmission Date: 20090506
  Serious: Yes (Hospitalization)
  Sender: FDA-Public Use
  Company Number: BR-ELI_LILLY_AND_COMPANY-BR200811000732

PATIENT
  Age: 78 Year
  Sex: Female
  Weight: 45 kg

DRUGS (3)
  1. FORTEO [Suspect]
     Indication: OSTEOPOROSIS
     Dosage: UNK, UNKNOWN
     Route: 065
     Dates: start: 20070701
  2. CAPTOPRIL [Concomitant]
     Dosage: 12.5 UNK, DAILY (1/D)
     Route: 048
  3. LASIX [Concomitant]
     Dosage: 20 MG, DAILY (1/D)
     Route: 048

REACTIONS (4)
  - BALANCE DISORDER [None]
  - EYE INJURY [None]
  - INJURY [None]
  - ROAD TRAFFIC ACCIDENT [None]
